FAERS Safety Report 8502596-7 (Version None)
Quarter: 2012Q3

REPORT INFORMATION
  Report Type: 
  Country: None (occurrence: None)
  Receive Date: 20120711
  Receipt Date: 20120706
  Transmission Date: 20120928
  Serious: Yes (Hospitalization)
  Sender: FDA-Public Use
  Company Number: US-PFIZER INC-2012132604

PATIENT
  Sex: Female

DRUGS (2)
  1. EFFEXOR XR [Suspect]
     Dosage: UNK
  2. EFFEXOR [Suspect]
     Dosage: UNK

REACTIONS (8)
  - REGURGITATION [None]
  - CRYING [None]
  - MENTAL DISORDER [None]
  - PYREXIA [None]
  - HEADACHE [None]
  - VOMITING [None]
  - NAUSEA [None]
  - WITHDRAWAL SYNDROME [None]
